FAERS Safety Report 9795917 (Version 2)
Quarter: 2014Q1

REPORT INFORMATION
  Report Type: Report from Study
  Country: FR (occurrence: FR)
  Receive Date: 20140103
  Receipt Date: 20140204
  Transmission Date: 20141002
  Serious: Yes (Death)
  Sender: FDA-Public Use
  Company Number: FR-PFIZER INC-2013373651

PATIENT
  Age: 76 Year
  Sex: Female
  Weight: 56 kg

DRUGS (6)
  1. SUTENT [Suspect]
     Indication: METASTATIC RENAL CELL CARCINOMA
     Dosage: 50 MG, UNK
     Route: 048
     Dates: start: 20131104, end: 20131223
  2. FRAGMIN [Concomitant]
     Indication: THROMBOSIS PROPHYLAXIS
     Dosage: 7500 IU, DAILY
     Route: 058
     Dates: start: 20131224
  3. AUGMENTIN [Concomitant]
     Indication: ANTIBIOTIC THERAPY
     Dosage: 3000 MG, DAILY
     Route: 048
     Dates: start: 20131204
  4. LAROXYL [Concomitant]
     Dosage: UNK
     Route: 048
  5. AMIODARONE [Concomitant]
     Dosage: 200 MG, DAILY
     Route: 048
     Dates: start: 20131203
  6. INEXIUM /01479302/ [Concomitant]
     Dosage: 40 MG, DAILY
     Route: 048

REACTIONS (2)
  - Acute respiratory distress syndrome [Fatal]
  - Lung disorder [Fatal]
